FAERS Safety Report 18898624 (Version 1)
Quarter: 2021Q1

REPORT INFORMATION
  Report Type: Spontaneous
  Country: US (occurrence: US)
  Receive Date: 20210214
  Receipt Date: 20210214
  Transmission Date: 20210420
  Serious: Yes (Other)
  Sender: FDA-Public Use
  Company Number: None

PATIENT
  Age: 24 Year
  Sex: Male
  Weight: 65.25 kg

DRUGS (2)
  1. RISPERIDONE 2 MG TAB [Suspect]
     Active Substance: RISPERIDONE
  2. BENZTROPINE MESYLATE 1 MG TABLET [Suspect]
     Active Substance: BENZTROPINE MESYLATE

REACTIONS (2)
  - Somnolence [None]
  - Dizziness [None]

NARRATIVE: CASE EVENT DATE: 20210214
